FAERS Safety Report 10184263 (Version 2)
Quarter: 2014Q2

REPORT INFORMATION
  Report Type: Spontaneous
  Country: US (occurrence: US)
  Receive Date: 20140520
  Receipt Date: 20140522
  Transmission Date: 20141212
  Serious: No
  Sender: FDA-Public Use
  Company Number: US-009507513-1404USA001591

PATIENT
  Age: 92 Year
  Sex: Female
  Weight: 86.17 kg

DRUGS (8)
  1. OXYTROL FOR WOMEN [Suspect]
     Indication: INCONTINENCE
     Dosage: UNK, UNKNOWN
     Route: 062
     Dates: start: 201312
  2. OXYTROL FOR WOMEN [Suspect]
     Dosage: UNK, UNKNOWN
     Route: 062
     Dates: start: 20140413, end: 20140415
  3. DOXAZOSIN MESYLATE [Concomitant]
     Indication: BLOOD PRESSURE
     Dosage: UNK, UNKNOWN
  4. GABAPENTIN [Concomitant]
     Indication: PAIN
     Dosage: UNK, UNKNOWN
  5. CYANOCOBALAMIN [Concomitant]
     Indication: PRODUCT USED FOR UNKNOWN INDICATION
     Dosage: UNK, UNKNOWN
  6. ONE-A-DAY ESSENTIAL VITAMINS [Concomitant]
     Indication: PRODUCT USED FOR UNKNOWN INDICATION
     Dosage: UNK, UNKNOWN
  7. CELEBREX [Concomitant]
     Indication: PRODUCT USED FOR UNKNOWN INDICATION
     Dosage: UNK, UNKNOWN
  8. CINNAMON [Concomitant]
     Indication: PRODUCT USED FOR UNKNOWN INDICATION
     Dosage: UNK, UNKNOWN

REACTIONS (1)
  - Skin burning sensation [Unknown]
